FAERS Safety Report 17962586 (Version 1)
Quarter: 2020Q2

REPORT INFORMATION
  Report Type: Spontaneous
  Country: US (occurrence: US)
  Receive Date: 20200629
  Receipt Date: 20200629
  Transmission Date: 20200714
  Serious: Yes (Other)
  Sender: FDA-Public Use
  Company Number: None

PATIENT
  Age: 67 Year
  Sex: Female
  Weight: 91.17 kg

DRUGS (1)
  1. METFORMIN HYDROCHLORIDE EXTENDED RELEASE TABLETS 750MG ND [Suspect]
     Active Substance: METFORMIN HYDROCHLORIDE

REACTIONS (14)
  - Hepatomegaly [None]
  - Back pain [None]
  - Oedematous kidney [None]
  - Abdominal pain upper [None]
  - Cystitis [None]
  - Blood urine present [None]
  - Pain [None]
  - Hepatic pain [None]
  - Abdominal pain [None]
  - Recalled product [None]
  - Product contamination chemical [None]
  - Musculoskeletal chest pain [None]
  - Sleep disorder [None]
  - Flank pain [None]

NARRATIVE: CASE EVENT DATE: 20200227
